FAERS Safety Report 18665907 (Version 1)
Quarter: 2020Q4

REPORT INFORMATION
  Report Type: Spontaneous
  Country: DK (occurrence: DK)
  Receive Date: 20201226
  Receipt Date: 20201226
  Transmission Date: 20210114
  Serious: Yes (Life-Threatening, Hospitalization)
  Sender: FDA-Public Use
  Company Number: DK-TEVA-2020-DK-1861218

PATIENT
  Age: 82 Year
  Sex: Female
  Weight: 64 kg

DRUGS (12)
  1. VIBEDEN [Concomitant]
     Active Substance: HYDROXOCOBALAMIN
     Indication: VITAMIN B12 DEFICIENCY
     Dosage: DOSAGE: PER WRITTEN INSTRUCTION?STRENGTH: 1 MG/ML
     Route: 030
     Dates: start: 20170706
  2. FORXIGA [Suspect]
     Active Substance: DAPAGLIFLOZIN
     Indication: TYPE 2 DIABETES MELLITUS
     Dosage: STRENGTH: 5 MG, 5MG
     Route: 048
     Dates: start: 20201029, end: 20201108
  3. COZAAR [Concomitant]
     Active Substance: LOSARTAN POTASSIUM
     Indication: HYPERTENSION
     Dosage: STRENGTH: 100 MG, 100MG
     Route: 048
     Dates: start: 20140115
  4. ELTROXIN [Concomitant]
     Active Substance: LEVOTHYROXINE
     Indication: HYPOTHYROIDISM
     Dosage: STRENGTH: 100 UG,100 UG
     Route: 048
     Dates: start: 20131220
  5. SIMVASTATIN ^KRKA^ [Concomitant]
     Indication: HYPERCHOLESTEROLAEMIA
     Dosage: STRENGTH: 40 MG, 40MG
     Route: 048
     Dates: start: 20140811
  6. HJERTEMAGNYL [Concomitant]
     Indication: THROMBOSIS PROPHYLAXIS
     Dosage: STRENGTH: 75 MG, 75MG
     Route: 048
     Dates: start: 20131220
  7. FURIX [Concomitant]
     Indication: DIURETIC THERAPY
     Dosage: STRENGTH: 40 MG, 40MG
     Route: 048
     Dates: start: 20170601
  8. METFORMIN [Suspect]
     Active Substance: METFORMIN HYDROCHLORIDE
     Indication: TYPE 2 DIABETES MELLITUS
     Dosage: STRENGTH: 1000 MG, 3000MG
     Route: 048
     Dates: start: 20120109, end: 20201108
  9. AMLODIPIN ^SANDOZ^ [Concomitant]
     Indication: HYPERTENSION
     Dosage: STRENGTH: 10 MG, 10MG
     Route: 048
     Dates: start: 20151214
  10. DIGOXIN ^DAK^ [Concomitant]
     Active Substance: DIGOXIN
     Indication: ATRIAL FIBRILLATION
     Dosage: STRENGTH: 62,5 UG, 187.5UG
     Route: 048
     Dates: start: 20140811
  11. MAREVAN [Concomitant]
     Active Substance: WARFARIN SODIUM
     Indication: ATRIAL FIBRILLATION
     Dosage: DOSAGE: PER WRITTEN INSTRUCTIONS ?STRENGTH: 2,5 MG
     Route: 048
     Dates: start: 20181126
  12. METOPROLOLSUCCINAT HEXAL [Concomitant]
     Active Substance: METOPROLOL SUCCINATE
     Indication: HYPERTENSION
     Dosage: STRENGTH: UNKNOWN?DOSAGE: UNKNOWN
     Route: 048
     Dates: start: 20120917

REACTIONS (6)
  - Presyncope [Unknown]
  - Lactic acidosis [Recovered/Resolved]
  - Ketoacidosis [Recovered/Resolved]
  - Vomiting [Unknown]
  - Bradycardia [Recovered/Resolved]
  - Nausea [Unknown]

NARRATIVE: CASE EVENT DATE: 20201106
